FAERS Safety Report 15700085 (Version 2)
Quarter: 2019Q1

REPORT INFORMATION
  Report Type: Report from Study
  Country: CO (occurrence: CO)
  Receive Date: 20181207
  Receipt Date: 20190118
  Transmission Date: 20190417
  Serious: Yes (Hospitalization, Other)
  Sender: FDA-Public Use
  Company Number: CO-ASTELLAS-2018US042814

PATIENT
  Age: 64 Year
  Sex: Female

DRUGS (3)
  1. TACROLIMUS. [Suspect]
     Active Substance: TACROLIMUS
     Indication: RENAL TRANSPLANT
     Dosage: 5 MG, ONCE DAILY (EVERY 24 HOURS)
     Route: 048
     Dates: start: 20180221, end: 20181127
  2. MYCOPHENOLATE [Concomitant]
     Active Substance: MYCOPHENOLIC ACID
     Indication: TRANSPLANT
     Route: 048
  3. TACROLIMUS. [Suspect]
     Active Substance: TACROLIMUS
     Indication: RENAL TRANSPLANT
     Dosage: 1 MG, ONCE DAILY (EVERY 24 HOURS)
     Route: 048
     Dates: start: 20180221, end: 20181127

REACTIONS (6)
  - Kidney transplant rejection [Unknown]
  - Viral infection [Unknown]
  - Arterial occlusive disease [Unknown]
  - Cytomegalovirus infection [Unknown]
  - Cytomegalovirus infection [Unknown]
  - Renal infarct [Unknown]

NARRATIVE: CASE EVENT DATE: 20180904
